FAERS Safety Report 17246353 (Version 2)
Quarter: 2020Q1

REPORT INFORMATION
  Report Type: Spontaneous
  Country: CA (occurrence: CA)
  Receive Date: 20200108
  Receipt Date: 20200113
  Transmission Date: 20200409
  Serious: Yes (Other)
  Sender: FDA-Public Use
  Company Number: CA-PFIZER INC-2020006412

PATIENT
  Age: 40 Year
  Sex: Female

DRUGS (4)
  1. BLEOMYCIN SULFATE [Suspect]
     Active Substance: BLEOMYCIN SULFATE
     Dosage: UNK, CYCLIC (DAY 8; 1ST OF 2 CYCLES)
     Dates: start: 20191028, end: 2019
  2. CISPLATIN. [Concomitant]
     Active Substance: CISPLATIN
     Dosage: UNK
     Dates: start: 20191028, end: 20191202
  3. BLEOMYCIN SULFATE [Suspect]
     Active Substance: BLEOMYCIN SULFATE
     Dosage: UNK, CYCLIC (DAY 15; 2ND OF 2 CYCLES)
     Dates: start: 2019, end: 20191202
  4. ETOPOSIDE. [Concomitant]
     Active Substance: ETOPOSIDE
     Dosage: UNK
     Dates: start: 20191028, end: 20191202

REACTIONS (2)
  - Neutropenia [Unknown]
  - Neoplasm progression [Unknown]
